FAERS Safety Report 7466118-4 (Version None)
Quarter: 2011Q2

REPORT INFORMATION
  Report Type: 
  Country: None (occurrence: None)
  Receive Date: 20110509
  Receipt Date: 20100701
  Transmission Date: 20111010
  Serious: No
  Sender: FDA-Public Use
  Company Number: US-ALEXION-A201000772

PATIENT
  Sex: Female

DRUGS (7)
  1. NEURONTIN [Concomitant]
     Dosage: UNK
     Route: 048
     Dates: end: 20100101
  2. SOLIRIS [Suspect]
     Dosage: 900 MG, Q2W
     Route: 042
     Dates: start: 20080311
  3. ARIXTRA [Concomitant]
     Indication: ANTICOAGULANT THERAPY
     Dosage: UNK
  4. GLUCOPHAGE [Concomitant]
     Dosage: UNK
     Route: 048
  5. FOLATE [Concomitant]
     Dosage: UNK
     Route: 048
     Dates: end: 20100101
  6. NADOLOL [Concomitant]
     Dosage: UNK
     Route: 048
  7. SOLIRIS [Suspect]
     Indication: PAROXYSMAL NOCTURNAL HAEMOGLOBINURIA
     Dosage: 600 MG, QW
     Route: 042
     Dates: start: 20080211, end: 20080304

REACTIONS (3)
  - POLYMENORRHOEA [None]
  - MENORRHAGIA [None]
  - PLATELET COUNT DECREASED [None]
